FAERS Safety Report 14096574 (Version 1)
Quarter: 2017Q4

REPORT INFORMATION
  Report Type: Spontaneous
  Country: US (occurrence: US)
  Receive Date: 20171017
  Receipt Date: 20171017
  Transmission Date: 20180321
  Serious: Yes (Hospitalization, Other)
  Sender: FDA-Public Use
  Company Number: US-ACCORD-059942

PATIENT
  Age: 26 Year
  Sex: Female

DRUGS (8)
  1. ONDANSETRON [Concomitant]
     Active Substance: ONDANSETRON
  2. LORAZEPAM. [Concomitant]
     Active Substance: LORAZEPAM
  3. RANITIDINE. [Concomitant]
     Active Substance: RANITIDINE
  4. TACROLIMUS. [Suspect]
     Active Substance: TACROLIMUS
     Indication: IMMUNOSUPPRESSANT DRUG THERAPY
  5. SORAFENIB/SORAFENIB TOSILATE [Suspect]
     Active Substance: SORAFENIB TOSYLATE
     Indication: ACUTE MYELOID LEUKAEMIA
  6. DAPSONE. [Concomitant]
     Active Substance: DAPSONE
  7. FLUCONAZOLE. [Concomitant]
     Active Substance: FLUCONAZOLE
  8. ACICLOVIR [Concomitant]
     Active Substance: ACYCLOVIR

REACTIONS (7)
  - Bacteraemia [Recovered/Resolved]
  - Pulmonary oedema [None]
  - Rash [None]
  - Headache [None]
  - Pulmonary mass [None]
  - Nodule [None]
  - Hypotension [None]
